FAERS Safety Report 6874648-9 (Version None)
Quarter: 2010Q3

REPORT INFORMATION
  Report Type: 
  Country: None (occurrence: None)
  Receive Date: 20100722
  Receipt Date: 20100713
  Transmission Date: 20110219
  Serious: Yes (Other)
  Sender: FDA-Public Use
  Company Number: US-1182592

PATIENT
  Sex: Female

DRUGS (1)
  1. CIPRODEX [Suspect]
     Dosage: (AURICULAR (OTIC))
     Route: 001

REACTIONS (1)
  - TYMPANIC MEMBRANE PERFORATION [None]
